FAERS Safety Report 5240819-0 (Version None)
Quarter: 2007Q1

REPORT INFORMATION
  Report Type: 
  Country: None (occurrence: None)
  Receive Date: 20061208
  Receipt Date: 20050601
  Transmission Date: 20070707
  Serious: Yes (Other)
  Sender: FDA-Public Use
  Company Number: 2005UW25550

PATIENT
  Age: 67 Year
  Sex: Female
  Weight: 73.4827 kg

DRUGS (10)
  1. CRESTOR [Suspect]
     Indication: BLOOD CHOLESTEROL INCREASED
     Dosage: 10 MG PO
     Route: 048
     Dates: start: 20040517
  2. CRESTOR [Suspect]
     Indication: BLOOD CHOLESTEROL INCREASED
     Dosage: 20 MG PO
     Route: 048
     Dates: start: 20041201
  3. INSULIN [Concomitant]
  4. SYNTHROID [Concomitant]
  5. LENOXIN [Concomitant]
  6. ALTACE [Concomitant]
  7. TRICOR [Concomitant]
  8. NIASPAN [Concomitant]
  9. CORTISONE ACETATE [Concomitant]
  10. LOPID [Concomitant]

REACTIONS (1)
  - LICHENOID KERATOSIS [None]
